FAERS Safety Report 7251107-5 (Version None)
Quarter: 2011Q1

REPORT INFORMATION
  Report Type: 
  Country: None (occurrence: None)
  Receive Date: 20110128
  Receipt Date: 20110124
  Transmission Date: 20110831
  Serious: Yes (Hospitalization)
  Sender: FDA-Public Use
  Company Number: US-PFIZER INC-2011016768

PATIENT
  Sex: Female
  Weight: 52.154 kg

DRUGS (1)
  1. DETROL LA [Suspect]
     Indication: BLADDER DISORDER
     Dosage: 2 MG, 1X/DAY
     Route: 048

REACTIONS (2)
  - SURGERY [None]
  - ABDOMINAL OPERATION [None]
